FAERS Safety Report 5830690-8 (Version None)
Quarter: 2008Q3

REPORT INFORMATION
  Report Type: 
  Country: None (occurrence: None)
  Receive Date: 20080801
  Receipt Date: 20071108
  Transmission Date: 20090109
  Serious: Yes (Hospitalization)
  Sender: FDA-Public Use
  Company Number: US-BRISTOL-MYERS SQUIBB COMPANY-13933411

PATIENT
  Age: 72 Year
  Sex: Female

DRUGS (5)
  1. WARFARIN SODIUM [Suspect]
     Indication: CEREBROVASCULAR ACCIDENT
     Dates: start: 20070826, end: 20070828
  2. ENOXAPARIN SODIUM [Suspect]
     Indication: CEREBROVASCULAR ACCIDENT
     Dates: start: 20070826, end: 20070828
  3. CANDESARTAN CILEXETIL [Concomitant]
  4. SOTALOL HCL [Concomitant]
  5. TRAMADOL HCL [Concomitant]

REACTIONS (3)
  - ABDOMINAL PAIN [None]
  - ASTHENIA [None]
  - INTRA-ABDOMINAL HAEMORRHAGE [None]
